FAERS Safety Report 15012509 (Version 1)
Quarter: 2018Q2

REPORT INFORMATION
  Report Type: Spontaneous
  Country: US (occurrence: US)
  Receive Date: 20180530
  Receipt Date: 20180530
  Transmission Date: 20180711
  Serious: Yes (Hospitalization, Other)
  Sender: FDA-Public Use
  Company Number: None

PATIENT
  Age: 37 Year
  Sex: Male
  Weight: 87.75 kg

DRUGS (10)
  1. LISINOPRIL HCTZ [Concomitant]
     Active Substance: HYDROCHLOROTHIAZIDE\LISINOPRIL
  2. GASTROCROM [Concomitant]
     Active Substance: CROMOLYN SODIUM
  3. DURAGESIC [Concomitant]
     Active Substance: FENTANYL
  4. DILAUDID [Concomitant]
     Active Substance: HYDROMORPHONE HYDROCHLORIDE
  5. ALLEGRA [Concomitant]
     Active Substance: FEXOFENADINE HYDROCHLORIDE
  6. SUBSYS [Concomitant]
     Active Substance: FENTANYL
  7. DEXILANT [Concomitant]
     Active Substance: DEXLANSOPRAZOLE
  8. NUCYNTA [Concomitant]
     Active Substance: TAPENTADOL HYDROCHLORIDE
  9. COSENTYX [Suspect]
     Active Substance: SECUKINUMAB
     Indication: PSORIATIC ARTHROPATHY
     Route: 030
  10. ZANTAC [Concomitant]
     Active Substance: RANITIDINE HYDROCHLORIDE

REACTIONS (8)
  - Tooth loss [None]
  - Nasopharyngitis [None]
  - Influenza like illness [None]
  - Infection [None]
  - Anal abscess [None]
  - Skin infection [None]
  - Oral infection [None]
  - Endodontic procedure [None]

NARRATIVE: CASE EVENT DATE: 20160914
